FAERS Safety Report 17420980 (Version 1)
Quarter: 2020Q1

REPORT INFORMATION
  Report Type: Spontaneous
  Country: ZA (occurrence: ZA)
  Receive Date: 20200214
  Receipt Date: 20200214
  Transmission Date: 20200409
  Serious: Yes (Other)
  Sender: FDA-Public Use
  Company Number: ZA-PFIZER INC-2020064178

PATIENT
  Age: 32 Year
  Sex: Male
  Weight: 163.4 kg

DRUGS (3)
  1. METHOTREXATE. [Suspect]
     Active Substance: METHOTREXATE
     Dosage: 25 MG, UNK
     Dates: start: 2014
  2. SALAZOPYRIN [Suspect]
     Active Substance: SULFASALAZINE
     Dosage: 2 G, UNK
     Dates: start: 2014, end: 20181004
  3. CHLOROQUINE. [Suspect]
     Active Substance: CHLOROQUINE
     Dosage: 200 MG, UNK
     Dates: start: 2014, end: 2018

REACTIONS (10)
  - Fibromyalgia [Unknown]
  - Alanine aminotransferase increased [Unknown]
  - Major depression [Unknown]
  - Rheumatoid arthritis [Unknown]
  - Sleep apnoea syndrome [Unknown]
  - C-reactive protein increased [Unknown]
  - Joint swelling [Unknown]
  - Drug ineffective [Unknown]
  - Loss of personal independence in daily activities [Unknown]
  - Anxiety disorder [Unknown]

NARRATIVE: CASE EVENT DATE: 2014
